FAERS Safety Report 7055738-7 (Version None)
Quarter: 2010Q4

REPORT INFORMATION
  Report Type: 
  Country: None (occurrence: None)
  Receive Date: 20101019
  Receipt Date: 20101019
  Transmission Date: 20110411
  Serious: Yes (Disabling)
  Sender: FDA-Public Use
  Company Number: None

PATIENT
  Sex: Male
  Weight: 109.1 kg

DRUGS (1)
  1. HUMIRA [Suspect]
     Indication: RHEUMATOID ARTHRITIS
     Dosage: 1 SHOT 2 SHOTS PER MONTH THROUGH STOMACH SKIN

REACTIONS (3)
  - BLINDNESS UNILATERAL [None]
  - INFECTION [None]
  - MULTIPLE SCLEROSIS [None]
